FAERS Safety Report 24315733 (Version 1)
Quarter: 2024Q3

REPORT INFORMATION
  Report Type: Spontaneous
  Country: US (occurrence: US)
  Receive Date: 20240913
  Receipt Date: 20240913
  Transmission Date: 20241017
  Serious: Yes (Other)
  Sender: TEVA
  Company Number: US-TEVA-VS-3240252

PATIENT
  Age: 44 Year
  Sex: Male
  Weight: 89 kg

DRUGS (1)
  1. UZEDY [Suspect]
     Active Substance: RISPERIDONE
     Indication: Schizoaffective disorder
     Dosage: 250/0.7 MG/ML
     Route: 065
     Dates: start: 20240619

REACTIONS (5)
  - Condition aggravated [Unknown]
  - Product use in unapproved indication [Unknown]
  - Aggression [Unknown]
  - Psychotic behaviour [Unknown]
  - Delusion [Unknown]

NARRATIVE: CASE EVENT DATE: 20240619
